FAERS Safety Report 23825283 (Version 1)
Quarter: 2024Q2

REPORT INFORMATION
  Report Type: Spontaneous
  Country: GB (occurrence: GB)
  Receive Date: 20240507
  Receipt Date: 20240507
  Transmission Date: 20240716
  Serious: Yes (Other)
  Sender: FDA-Public Use
  Company Number: GB-SAMSUNG BIOEPIS-SB-2024-11107

PATIENT
  Age: 40 Year
  Sex: Female

DRUGS (2)
  1. FERROUS SULFATE [Suspect]
     Active Substance: FERROUS SULFATE
     Indication: Product used for unknown indication
     Dosage: UNK
     Route: 065
  2. IMRALDI [Suspect]
     Active Substance: ADALIMUMAB
     Indication: Psoriatic arthropathy
     Dosage: 40 MG/0.8 ML, 1DOSE/2 WEEKS
     Route: 058

REACTIONS (5)
  - Psoriatic arthropathy [Unknown]
  - Malaise [Unknown]
  - Pain [Unknown]
  - Somnolence [Unknown]
  - Abdominal discomfort [Unknown]
